FAERS Safety Report 7589794-4 (Version None)
Quarter: 2011Q3

REPORT INFORMATION
  Report Type: 
  Country: None (occurrence: None)
  Receive Date: 20110705
  Receipt Date: 20110621
  Transmission Date: 20111222
  Serious: Yes (Other)
  Sender: FDA-Public Use
  Company Number: US-ENDO PHARMACEUTICALS INC.-SPLN20110011

PATIENT
  Sex: Female
  Weight: 22.246 kg

DRUGS (1)
  1. SUPPRELIN LA [Suspect]
     Indication: PRECOCIOUS PUBERTY
     Route: 058
     Dates: start: 20100611, end: 20110201

REACTIONS (6)
  - ABDOMINAL PAIN UPPER [None]
  - VISION BLURRED [None]
  - IMPLANT SITE PAIN [None]
  - BLINDNESS TRANSIENT [None]
  - DIZZINESS [None]
  - RETINAL MIGRAINE [None]
